FAERS Safety Report 9639342 (Version 3)
Quarter: 2013Q4

REPORT INFORMATION
  Report Type: Report from Study
  Country: FR (occurrence: FR)
  Receive Date: 20131022
  Receipt Date: 20131111
  Transmission Date: 20140711
  Serious: Yes (Hospitalization)
  Sender: FDA-Public Use
  Company Number: FR-ROCHE-1289662

PATIENT
  Age: 48 Year
  Sex: Male

DRUGS (8)
  1. PEG-INTERFERON ALFA 2A [Suspect]
     Indication: HEPATITIS C
     Route: 065
     Dates: start: 20130430, end: 20131003
  2. RIBAVIRIN [Suspect]
     Indication: HEPATITIS C
     Route: 065
     Dates: start: 20130430, end: 20131003
  3. ASUNAPREVIR [Suspect]
     Indication: HEPATITIS C
     Route: 065
     Dates: start: 20130529, end: 20131003
  4. DACLATASVIR [Suspect]
     Indication: HEPATITIS C
     Route: 065
     Dates: start: 20130529, end: 20131003
  5. ISENTRESS [Concomitant]
     Route: 065
     Dates: start: 20110209
  6. TRUVADA [Concomitant]
     Route: 065
     Dates: start: 20130219
  7. COTAREG [Concomitant]
     Route: 065
     Dates: start: 20110208, end: 20121203
  8. CEFTRIAXONE [Concomitant]

REACTIONS (1)
  - Urosepsis [Recovered/Resolved]
